FAERS Safety Report 7649955-2 (Version None)
Quarter: 2011Q3

REPORT INFORMATION
  Report Type: 
  Country: None (occurrence: None)
  Receive Date: 20110802
  Receipt Date: 20110728
  Transmission Date: 20111222
  Serious: Yes (Hospitalization, Other)
  Sender: FDA-Public Use
  Company Number: ZA-SANOFI-AVENTIS-2011SA048477

PATIENT

DRUGS (4)
  1. LANTUS [Suspect]
     Route: 015
  2. SOLOSTAR [Suspect]
  3. SOLOSTAR [Suspect]
  4. APIDRA SOLOSTAR [Suspect]
     Indication: GESTATIONAL DIABETES
     Route: 015

REACTIONS (2)
  - PREMATURE BABY [None]
  - MATERNAL EXPOSURE DURING PREGNANCY [None]
